FAERS Safety Report 4324481-7 (Version None)
Quarter: 2004Q1

REPORT INFORMATION
  Report Type: 
  Country: None (occurrence: None)
  Receive Date: 20040325
  Receipt Date: 20040325
  Transmission Date: 20041129
  Serious: Yes (Life-Threatening, Hospitalization)
  Sender: FDA-Public Use
  Company Number: None

PATIENT
  Age: 42 Year
  Sex: Male
  Weight: 81.6475 kg

DRUGS (1)
  1. TEQUIN [Suspect]
     Indication: PNEUMONIA
     Dosage: 1 X DAILY

REACTIONS (4)
  - COUGH [None]
  - DYSPHAGIA [None]
  - NEUROPATHY [None]
  - STEVENS-JOHNSON SYNDROME [None]
